FAERS Safety Report 9959635 (Version 1)
Quarter: 2014Q1

REPORT INFORMATION
  Report Type: Report from Study
  Country: US (occurrence: US)
  Receive Date: 20140305
  Receipt Date: 20140305
  Transmission Date: 20141002
  Serious: No
  Sender: FDA-Public Use
  Company Number: US-ABBVIE-13P-163-1101749-00

PATIENT
  Sex: Female
  Weight: 68.1 kg

DRUGS (6)
  1. HUMIRA [Suspect]
     Indication: CROHN^S DISEASE
     Route: 058
     Dates: start: 201211, end: 201211
  2. HUMIRA [Suspect]
     Route: 058
     Dates: start: 201212, end: 201212
  3. HUMIRA [Suspect]
     Route: 058
     Dates: start: 201212, end: 201302
  4. HUMIRA [Suspect]
     Route: 058
     Dates: start: 201303
  5. VITAMIN B12 [Concomitant]
     Indication: PRODUCT USED FOR UNKNOWN INDICATION
  6. ZINC [Concomitant]
     Indication: PRODUCT USED FOR UNKNOWN INDICATION

REACTIONS (1)
  - Hormone level abnormal [Not Recovered/Not Resolved]
